FAERS Safety Report 6741216 (Version 3)
Quarter: 2012Q4

REPORT INFORMATION
  Report Type: 
  Country: ES (occurrence: ES)
  Receive Date: 20080828
  Receipt Date: 20120912
  Transmission Date: 20130627
  Serious: Yes (Hospitalization)
  Sender: FDA-Public Use
  Company Number: ES-ASTRAZENECA-2008AC02280

PATIENT
  Age: 33 Year
  Sex: Female

DRUGS (6)
  1. SEROQUEL [Suspect]
     Indication: BIPOLAR DISORDER
     Route: 048
     Dates: start: 200805, end: 20080624
  2. LEVOTHROID [Concomitant]
     Route: 048
  3. RISPERDAL CONSTA [Concomitant]
     Dosage: 25 MG POWDER AND SOLVENT FOR INJECTABLE SOLUTION EVERY TWO WEEKS
  4. RIVOTRIL [Concomitant]
     Route: 048
  5. DEPAKINE [Concomitant]
     Route: 048
     Dates: end: 200805
  6. TRANXILIUM [Concomitant]
     Route: 048
     Dates: start: 20080616

REACTIONS (4)
  - Liver injury [Recovered/Resolved]
  - Hepatic lesion [Recovered/Resolved]
  - Mania [Recovered/Resolved]
  - Drug ineffective [Recovered/Resolved]
